FAERS Safety Report 5218011-5 (Version None)
Quarter: 2007Q1

REPORT INFORMATION
  Report Type: 
  Country: None (occurrence: None)
  Receive Date: 20061130
  Receipt Date: 20060720
  Transmission Date: 20070707
  Serious: Yes (Hospitalization, Other)
  Sender: FDA-Public Use
  Company Number: US200607001774

PATIENT
  Age: 53 Year
  Sex: Female
  Weight: 78 kg

DRUGS (5)
  1. ZYPREXA [Suspect]
     Dosage: SEE IMAGE
     Dates: start: 20020801, end: 20030601
  2. ZYPREXA [Suspect]
     Dosage: SEE IMAGE
     Dates: start: 20030601, end: 20040701
  3. ZYPREXA [Suspect]
     Dosage: SEE IMAGE
     Dates: start: 20040701, end: 20050901
  4. RISPERDAL [Concomitant]
  5. TOPROL-XL [Concomitant]

REACTIONS (5)
  - DIABETIC KETOACIDOSIS [None]
  - HYPERTENSION [None]
  - KETOACIDOSIS [None]
  - PANCREATITIS [None]
  - WEIGHT DECREASED [None]
